FAERS Safety Report 24439969 (Version 2)
Quarter: 2024Q4

REPORT INFORMATION
  Report Type: Report from Study
  Country: TN (occurrence: TN)
  Receive Date: 20241015
  Receipt Date: 20241107
  Transmission Date: 20250115
  Serious: Yes (Hospitalization, Other)
  Sender: ABBVIE
  Company Number: TN-ABBVIE-5961883

PATIENT
  Age: 72 Year
  Sex: Male
  Weight: 57 kg

DRUGS (6)
  1. HUMIRA [Suspect]
     Active Substance: ADALIMUMAB
     Indication: Psoriasis
     Dosage: FORM STRENGTH: 40 MILLIGRAM.
     Route: 058
     Dates: start: 20240815
  2. HUMIRA [Suspect]
     Active Substance: ADALIMUMAB
     Indication: Rheumatic disorder
  3. FAMOTIDINE [Concomitant]
     Active Substance: FAMOTIDINE
     Indication: Gastrointestinal disorder prophylaxis
     Dosage: 1 TABLET?START DATE TEXT: BEFORE HUMIRA
     Route: 048
  4. CINCOR [Concomitant]
     Indication: Extrasystoles
     Dosage: 2 TABLET?FORM STRENGTH: 2.5 MILLIGRAM?START DATE TEXT: A YEAR AND 6 MONTHS AGO?STOP DATE TEXT: DA...
     Route: 048
  5. CINCOR [Concomitant]
     Indication: Extrasystoles
     Dosage: 2 TABLET?FORM STRENGTH: 2.5 MILLIGRAM?START DATE TEXT: 2 MONTHS AGO
     Route: 048
     Dates: start: 202408
  6. ESOMEPRAZOLE MAGNESIUM [Concomitant]
     Active Substance: ESOMEPRAZOLE MAGNESIUM
     Indication: Gastrointestinal disorder prophylaxis
     Dosage: 1 TABLET
     Route: 048

REACTIONS (12)
  - Aphasia [Recovered/Resolved]
  - Balance disorder [Not Recovered/Not Resolved]
  - Acne [Recovered/Resolved]
  - Speech disorder [Not Recovered/Not Resolved]
  - Cerebrovascular accident [Not Recovered/Not Resolved]
  - Dysstasia [Not Recovered/Not Resolved]
  - Lacrimation increased [Not Recovered/Not Resolved]
  - Vision blurred [Not Recovered/Not Resolved]
  - Movement disorder [Recovered/Resolved]
  - Arthralgia [Not Recovered/Not Resolved]
  - Pruritus [Recovered/Resolved]
  - Fatigue [Not Recovered/Not Resolved]

NARRATIVE: CASE EVENT DATE: 20240101
